FAERS Safety Report 18073426 (Version 1)
Quarter: 2020Q3

REPORT INFORMATION
  Report Type: Spontaneous
  Country: US (occurrence: US)
  Receive Date: 20200727
  Receipt Date: 20200727
  Transmission Date: 20201103
  Serious: Yes (Hospitalization)
  Sender: FDA-Public Use
  Company Number: US-MYLANLABS-2020M1067329

PATIENT
  Age: 73 Year
  Sex: Male

DRUGS (2)
  1. GLATIRAMER [Suspect]
     Active Substance: GLATIRAMER
     Indication: MULTIPLE SCLEROSIS
     Dosage: SINCE 8 YEARS
     Route: 065
  2. CLINDAMYCIN. [Suspect]
     Active Substance: CLINDAMYCIN
     Indication: CELLULITIS
     Route: 065

REACTIONS (4)
  - Drug ineffective [Recovered/Resolved]
  - Varicella zoster virus infection [Recovered/Resolved]
  - Cellulitis [Recovered/Resolved]
  - Disseminated varicella zoster virus infection [Recovered/Resolved]
